FAERS Safety Report 5186750-0 (Version None)
Quarter: 2006Q4

REPORT INFORMATION
  Report Type: 
  Country: None (occurrence: None)
  Receive Date: 20061220
  Receipt Date: 20061101
  Transmission Date: 20070319
  Serious: No
  Sender: FDA-Public Use
  Company Number: US-AMGEN-KDL198961

PATIENT
  Sex: Male

DRUGS (2)
  1. ENBREL [Suspect]
     Indication: RHEUMATOID ARTHRITIS
     Route: 058
     Dates: start: 20001201, end: 20061026
  2. METHOTREXATE [Concomitant]
     Route: 058
     Dates: start: 20060701

REACTIONS (3)
  - PNEUMONIA [None]
  - RASH ERYTHEMATOUS [None]
  - SKIN HAEMORRHAGE [None]
